FAERS Safety Report 24213637 (Version 2)
Quarter: 2024Q3

REPORT INFORMATION
  Report Type: Spontaneous
  Country: US (occurrence: US)
  Receive Date: 20240815
  Receipt Date: 20240910
  Transmission Date: 20241016
  Serious: No
  Sender: CALLIDITAS THERAPEUTICS
  Company Number: US-Calliditas-2024CAL01474

PATIENT
  Age: 35 Year
  Sex: Male
  Weight: 70.8 kg

DRUGS (1)
  1. TARPEYO [Suspect]
     Active Substance: BUDESONIDE
     Indication: IgA nephropathy
     Route: 048
     Dates: start: 20240726

REACTIONS (5)
  - Vertigo [Recovered/Resolved]
  - Hyperhidrosis [Unknown]
  - Blood pressure increased [Unknown]
  - Feeling abnormal [Unknown]
  - Irritability [Recovered/Resolved]

NARRATIVE: CASE EVENT DATE: 20240801
